FAERS Safety Report 18568569 (Version 1)
Quarter: 2020Q4

REPORT INFORMATION
  Report Type: Spontaneous
  Country: US (occurrence: US)
  Receive Date: 20201202
  Receipt Date: 20201202
  Transmission Date: 20210114
  Serious: No
  Sender: FDA-Public Use
  Company Number: US-BAYER-2020-261821

PATIENT
  Age: 82 Year
  Sex: Male

DRUGS (6)
  1. CARVEDILOL. [Concomitant]
     Active Substance: CARVEDILOL
  2. FINASTERIDE. [Concomitant]
     Active Substance: FINASTERIDE
  3. XARELTO [Concomitant]
     Active Substance: RIVAROXABAN
  4. LOVASTATIN. [Concomitant]
     Active Substance: LOVASTATIN
  5. MIRALAX [Suspect]
     Active Substance: POLYETHYLENE GLYCOL 3350
     Indication: GASTROINTESTINAL DISORDER
     Dosage: 17 G
     Route: 048
     Dates: start: 20201124
  6. TORSEMIDE. [Concomitant]
     Active Substance: TORSEMIDE

REACTIONS (3)
  - Drug ineffective [Unknown]
  - Defaecation urgency [Unknown]
  - Flatulence [Unknown]

NARRATIVE: CASE EVENT DATE: 202011
